FAERS Safety Report 5086062-X (Version None)
Quarter: 2006Q3

REPORT INFORMATION
  Report Type: 
  Country: None (occurrence: None)
  Receive Date: 20060818
  Receipt Date: 20060803
  Transmission Date: 20061208
  Serious: Yes (Hospitalization)
  Sender: FDA-Public Use
  Company Number: 0157473A

PATIENT
  Sex: Male

DRUGS (2)
  1. COLGATE TOTAL TOOTHPASTE PUMP [Suspect]
     Indication: DENTAL PLAQUE
     Dosage: ORAL
     Route: 048
  2. COLGATE TOTAL TOOTHPASTE PUMP [Suspect]
     Indication: GINGIVITIS
     Dosage: ORAL
     Route: 048

REACTIONS (1)
  - SQUAMOUS CELL CARCINOMA [None]
